FAERS Safety Report 7725233-8 (Version None)
Quarter: 2011Q3

REPORT INFORMATION
  Report Type: 
  Country: None (occurrence: None)
  Receive Date: 20110902
  Receipt Date: 20110824
  Transmission Date: 20111222
  Serious: Yes (Hospitalization)
  Sender: FDA-Public Use
  Company Number: KR-BRISTOL-MYERS SQUIBB COMPANY-15998917

PATIENT
  Age: 52 Year
  Sex: Male

DRUGS (1)
  1. ERBITUX [Suspect]
     Indication: TONGUE NEOPLASM MALIGNANT STAGE UNSPECIFIED
     Dosage: RECENT INF(7TH):17SEP2010
     Dates: start: 20100729

REACTIONS (1)
  - HYPOPHAGIA [None]
